FAERS Safety Report 7457026-3 (Version None)
Quarter: 2011Q2

REPORT INFORMATION
  Report Type: 
  Country: None (occurrence: None)
  Receive Date: 20110504
  Receipt Date: 20110425
  Transmission Date: 20111010
  Serious: Yes (Other)
  Sender: FDA-Public Use
  Company Number: US-AMGEN-USASP2011021553

PATIENT
  Age: 61 Year
  Sex: Female

DRUGS (6)
  1. ENBREL [Suspect]
     Indication: PSORIATIC ARTHROPATHY
  2. ARAVA [Concomitant]
     Dates: start: 20100601
  3. REMICADE [Concomitant]
  4. ENBREL [Suspect]
     Indication: PSORIASIS
     Dosage: 50 MG, QWK
     Dates: start: 20050201, end: 20050101
  5. SIMPONI [Concomitant]
  6. HUMIRA [Concomitant]

REACTIONS (5)
  - PSORIATIC ARTHROPATHY [None]
  - DRUG HYPERSENSITIVITY [None]
  - THERAPEUTIC RESPONSE DECREASED [None]
  - COLITIS COLLAGENOUS [None]
  - PSORIASIS [None]
